FAERS Safety Report 7357070-0 (Version None)
Quarter: 2011Q1

REPORT INFORMATION
  Report Type: 
  Country: None (occurrence: None)
  Receive Date: 20110317
  Receipt Date: 20100908
  Transmission Date: 20110831
  Serious: Yes (Other)
  Sender: FDA-Public Use
  Company Number: US-BAYER-201022580NA

PATIENT
  Sex: Female
  Weight: 61 kg

DRUGS (4)
  1. YASMIN [Suspect]
     Route: 048
  2. AMITRIPTYLINE HCL [Concomitant]
     Indication: ANXIETY
     Dosage: 10 MG, QD
     Route: 048
     Dates: start: 20081203
  3. OMEPRAZOLE [Concomitant]
     Indication: GASTROOESOPHAGEAL REFLUX DISEASE
     Dosage: 2 DF, QD
     Route: 048
     Dates: start: 20081203
  4. YAZ [Suspect]
     Dosage: UNK
     Route: 048
     Dates: start: 20080101, end: 20100101

REACTIONS (4)
  - CHOLECYSTECTOMY [None]
  - CHOLELITHIASIS [None]
  - CHOLECYSTITIS CHRONIC [None]
  - CHOLESTEROSIS [None]
